FAERS Safety Report 8493643-X (Version None)
Quarter: 2012Q3

REPORT INFORMATION
  Report Type: 
  Country: None (occurrence: None)
  Receive Date: 20120706
  Receipt Date: 20120202
  Transmission Date: 20120928
  Serious: Yes (Death)
  Sender: FDA-Public Use
  Company Number: VN-BAXTER-2012BAX010277

PATIENT
  Sex: Male

DRUGS (3)
  1. DIANEAL [Suspect]
     Route: 033
     Dates: start: 20071004
  2. DIANEAL [Suspect]
     Route: 033
     Dates: start: 20071004
  3. DIANEAL [Suspect]
     Route: 033
     Dates: start: 20071004

REACTIONS (1)
  - DEATH [None]
